FAERS Safety Report 7232613-6 (Version None)
Quarter: 2011Q1

REPORT INFORMATION
  Report Type: 
  Country: None (occurrence: None)
  Receive Date: 20110119
  Receipt Date: 20110114
  Transmission Date: 20110831
  Serious: Yes (Hospitalization)
  Sender: FDA-Public Use
  Company Number: PHHY2010TW78616

PATIENT
  Age: 59 Year
  Sex: Male

DRUGS (1)
  1. SEBIVO [Suspect]
     Dates: start: 20100325

REACTIONS (1)
  - HEPATIC NEOPLASM MALIGNANT [None]
